FAERS Safety Report 6694079-4 (Version None)
Quarter: 2010Q2

REPORT INFORMATION
  Report Type: 
  Country: None (occurrence: None)
  Receive Date: 20100423
  Receipt Date: 20100417
  Transmission Date: 20101027
  Serious: Yes (Death, Hospitalization)
  Sender: FDA-Public Use
  Company Number: IT-BAYER-201017179GPV

PATIENT
  Age: 93 Year
  Sex: Female

DRUGS (2)
  1. ASPIRIN [Suspect]
     Indication: CARDIOVASCULAR EVENT PROPHYLAXIS
     Dosage: TOTAL DAILY DOSE: 100 MG  UNIT DOSE: 100 MG
     Route: 048
     Dates: end: 20091216
  2. SELOKEN [Concomitant]

REACTIONS (8)
  - ANURIA [None]
  - COMA [None]
  - HYPOTENSION [None]
  - MYDRIASIS [None]
  - OXYGEN SATURATION DECREASED [None]
  - SUBDURAL HAEMATOMA [None]
  - TRAUMATIC BRAIN INJURY [None]
  - TRAUMATIC FRACTURE [None]
